APPROVED DRUG PRODUCT: ANZEMET
Active Ingredient: DOLASETRON MESYLATE
Strength: 500MG/25ML (20MG/ML)
Dosage Form/Route: INJECTABLE;INJECTION
Application: N020624 | Product #003
Applicant: VALIDUS PHARMACEUTICALS LLC
Approved: Dec 11, 2001 | RLD: No | RS: No | Type: DISCN